FAERS Safety Report 9377090 (Version 1)
Quarter: 2013Q3

REPORT INFORMATION
  Report Type: Spontaneous
  Country: US (occurrence: US)
  Receive Date: 20130701
  Receipt Date: 20130701
  Transmission Date: 20140515
  Serious: No
  Sender: FDA-Public Use
  Company Number: US-BAYER-2013-078690

PATIENT
  Sex: Female

DRUGS (5)
  1. BETASERON [Suspect]
     Indication: MULTIPLE SCLEROSIS
     Dosage: 0.25 MG, QOD
     Route: 058
  2. LOSARTAN [Concomitant]
  3. BONIVA [Concomitant]
  4. VITAMIN B12 [Concomitant]
  5. VITAMIN D3 [Concomitant]

REACTIONS (5)
  - Injection site erythema [None]
  - Injection site irritation [None]
  - Injection site pain [None]
  - Urticaria [None]
  - Flushing [None]
